FAERS Safety Report 8530049-9 (Version None)
Quarter: 2012Q2

REPORT INFORMATION
  Report Type: 
  Country: None (occurrence: None)
  Receive Date: 20120411
  Receipt Date: 20110624
  Transmission Date: 20120825
  Serious: Yes (Other)
  Sender: FDA-Public Use
  Company Number: 036076

PATIENT
  Age: 10 Year
  Sex: Male

DRUGS (1)
  1. METADATE CD [Suspect]
     Dosage: (20 MG QD)

REACTIONS (1)
  - CONVULSION [None]
